FAERS Safety Report 25884223 (Version 1)
Quarter: 2025Q4

REPORT INFORMATION
  Report Type: Spontaneous
  Country: EU (occurrence: EU)
  Receive Date: 20251006
  Receipt Date: 20251006
  Transmission Date: 20260118
  Serious: Yes (Death, Life-Threatening, Hospitalization)
  Sender: ACCORD
  Company Number: EU-MLMSERVICE-20250918-PI648429-00165-1

PATIENT
  Age: 35 Year
  Sex: Female

DRUGS (2)
  1. GEMCITABINE [Suspect]
     Active Substance: GEMCITABINE
     Indication: Sarcoma metastatic
     Dates: start: 202410
  2. GEMCITABINE [Suspect]
     Active Substance: GEMCITABINE
     Indication: Histiocytic sarcoma
     Dates: start: 202410

REACTIONS (4)
  - Subacute cutaneous lupus erythematosus [Fatal]
  - Corynebacterium sepsis [Fatal]
  - Condition aggravated [Fatal]
  - Off label use [Unknown]

NARRATIVE: CASE EVENT DATE: 20241001
